FAERS Safety Report 6895682-9 (Version None)
Quarter: 2010Q3

REPORT INFORMATION
  Report Type: 
  Country: None (occurrence: None)
  Receive Date: 20100802
  Receipt Date: 20100726
  Transmission Date: 20110219
  Serious: Yes (Other)
  Sender: FDA-Public Use
  Company Number: US-JNJFOC-20100705274

PATIENT
  Sex: Male
  Weight: 79.38 kg

DRUGS (11)
  1. NUCYNTA [Suspect]
     Indication: BACK PAIN
     Dosage: 50 MG TWICE DAILY
     Route: 048
  2. NUCYNTA [Suspect]
     Dosage: 50 MG EVERY 6 HOURS
     Route: 048
  3. BACLOFEN [Concomitant]
     Indication: MUSCLE SPASMS
     Dosage: 2 PER DAY
  4. BACLOFEN [Concomitant]
     Dosage: 2 PER DAY
  5. BACLOFEN [Concomitant]
     Indication: SLEEP DISORDER
     Dosage: 2 PER DAY
  6. BACLOFEN [Concomitant]
     Dosage: 2 PER DAY
  7. TEMAZEPAM [Concomitant]
     Indication: MUSCLE SPASMS
  8. TEMAZEPAM [Concomitant]
  9. TEMAZEPAM [Concomitant]
     Indication: SLEEP DISORDER
  10. TEMAZEPAM [Concomitant]
  11. HYDROCODONE BITARTRATE [Concomitant]
     Indication: PAIN
     Dosage: 10/500, 3 TIMES DAILY

REACTIONS (6)
  - DEPRESSION [None]
  - DIARRHOEA [None]
  - DRUG INEFFECTIVE [None]
  - FORMICATION [None]
  - HEADACHE [None]
  - PAIN IN EXTREMITY [None]
